FAERS Safety Report 13781413 (Version 3)
Quarter: 2017Q3

REPORT INFORMATION
  Report Type: Report from Study
  Country: US (occurrence: US)
  Receive Date: 20170724
  Receipt Date: 20170822
  Transmission Date: 20171127
  Serious: Yes (Hospitalization, Other)
  Sender: FDA-Public Use
  Company Number: US-BRISTOL-MYERS SQUIBB COMPANY-BMS-2017-056321

PATIENT
  Sex: Male

DRUGS (1)
  1. NIVOLUMAB [Suspect]
     Active Substance: NIVOLUMAB
     Indication: RENAL CANCER
     Route: 042

REACTIONS (24)
  - Fatigue [Unknown]
  - Memory impairment [Unknown]
  - Chest pain [Unknown]
  - Diarrhoea [Unknown]
  - Dyspnoea [Unknown]
  - Hypersomnia [Unknown]
  - Diverticulitis [Unknown]
  - Thirst [Unknown]
  - Headache [Unknown]
  - Tongue dry [Unknown]
  - Abdominal discomfort [Unknown]
  - Pain [Unknown]
  - Acute kidney injury [Unknown]
  - Muscle spasms [Unknown]
  - Back disorder [Unknown]
  - Constipation [Unknown]
  - Abnormal faeces [Unknown]
  - Vision blurred [Unknown]
  - Gastrointestinal pain [Unknown]
  - Confusional state [Unknown]
  - Hyperglycaemia [Unknown]
  - Abdominal pain upper [Unknown]
  - Flatulence [Unknown]
  - Lethargy [Unknown]
